FAERS Safety Report 21746440 (Version 1)
Quarter: 2022Q4

REPORT INFORMATION
  Report Type: Spontaneous
  Country: ES (occurrence: ES)
  Receive Date: 20221219
  Receipt Date: 20221219
  Transmission Date: 20230112
  Serious: Yes (Hospitalization, Other)
  Sender: FDA-Public Use
  Company Number: ES-WOCKHARDT BIO AG-2022WBA000223

PATIENT
  Age: 3 Year
  Sex: Male

DRUGS (1)
  1. AMOXICILLIN TRIHYDRATE [Suspect]
     Active Substance: AMOXICILLIN
     Indication: Otitis media acute
     Dosage: 250 MILLIGRAM/KILOGRAM, QD
     Route: 048

REACTIONS (2)
  - Enterocolitis [Recovered/Resolved]
  - Product use in unapproved indication [Unknown]
